FAERS Safety Report 5101443-3 (Version None)
Quarter: 2006Q3

REPORT INFORMATION
  Report Type: 
  Country: None (occurrence: None)
  Receive Date: 20060906
  Receipt Date: 20060825
  Transmission Date: 20061208
  Serious: Yes (Life-Threatening, Hospitalization)
  Sender: FDA-Public Use
  Company Number: GXKR2006IT05196

PATIENT
  Age: 45 Year
  Sex: Male
  Weight: 85 kg

DRUGS (2)
  1. PARACETAMOL (NGX) (PARACETAMOL) [Suspect]
     Indication: FEBRILE INFECTION
     Dosage: 1000 MG, QID, ORAL
     Route: 048
  2. BUPRENORPHINE HCL [Concomitant]

REACTIONS (4)
  - ANOREXIA [None]
  - DRUG WITHDRAWAL SYNDROME [None]
  - HEPATOTOXICITY [None]
  - INTERNATIONAL NORMALISED RATIO INCREASED [None]
